FAERS Safety Report 4325033-5 (Version None)
Quarter: 2004Q1

REPORT INFORMATION
  Report Type: 
  Country: None (occurrence: None)
  Receive Date: 20040326
  Receipt Date: 20040326
  Transmission Date: 20041129
  Serious: Yes (Life-Threatening, Hospitalization)
  Sender: FDA-Public Use
  Company Number: None

PATIENT
  Age: 29 Year
  Sex: Female
  Weight: 65.7716 kg

DRUGS (5)
  1. PROZAC [Suspect]
     Indication: DEPRESSION
     Dosage: 1 ORAL
     Route: 048
     Dates: start: 20030910, end: 20040110
  2. ZOLOFT [Suspect]
     Indication: DEPRESSION
     Dosage: 2-3 ORAL
     Route: 048
     Dates: start: 19990910, end: 20030910
  3. ZOLOFT [Suspect]
     Indication: PAIN
     Dosage: 2-3 ORAL
     Route: 048
     Dates: start: 19990910, end: 20030910
  4. PAXIL [Suspect]
  5. WELLBUTRIN [Suspect]

REACTIONS (13)
  - AFFECT LABILITY [None]
  - AMNESIA [None]
  - ANTISOCIAL BEHAVIOUR [None]
  - CONFUSIONAL STATE [None]
  - CONVERSION DISORDER [None]
  - HOSTILITY [None]
  - MIGRAINE [None]
  - MYALGIA [None]
  - PARANOIA [None]
  - SUICIDAL IDEATION [None]
  - SUICIDE ATTEMPT [None]
  - VERTIGO [None]
  - WEIGHT INCREASED [None]
